FAERS Safety Report 9162800 (Version 1)
Quarter: 2013Q1

REPORT INFORMATION
  Report Type: Spontaneous
  Country: US (occurrence: None)
  Receive Date: 20130222
  Receipt Date: 20130222
  Transmission Date: 20140127
  Serious: Yes (Other)
  Sender: FDA-Public Use
  Company Number: SYM-2013-00489

PATIENT
  Sex: Female

DRUGS (2)
  1. WELLBUTRIN SR (BUPROPION HYDROCHLORIDE) (TABLETS) (BUPROPION HYDROCHLORIDE) [Suspect]
     Indication: PRODUCT USED FOR UNKNOWN INDICATION
     Dates: start: 201207
  2. ALCOHOL [Suspect]
     Indication: PRODUCT USED FOR UNKNOWN INDICATION
     Route: 048

REACTIONS (9)
  - VIIth nerve paralysis [None]
  - Poisoning [None]
  - Impaired reasoning [None]
  - Eyelid ptosis [None]
  - Dysarthria [None]
  - Paranoia [None]
  - Mental disorder [None]
  - Social problem [None]
  - Alcohol interaction [None]
